FAERS Safety Report 10516833 (Version 2)
Quarter: 2014Q4

REPORT INFORMATION
  Report Type: Spontaneous
  Country: US (occurrence: US)
  Receive Date: 20141014
  Receipt Date: 20141202
  Transmission Date: 20150528
  Serious: Yes (Other)
  Sender: FDA-Public Use
  Company Number: US-BAYER-2014-151564

PATIENT
  Age: 21 Year
  Sex: Female
  Weight: 202 kg

DRUGS (6)
  1. MIRENA [Suspect]
     Active Substance: LEVONORGESTREL
     Indication: CONTRACEPTION
     Dosage: 20 MCG/24HR, CONT
     Route: 015
     Dates: start: 20140822, end: 20140918
  2. CLONAZEPAM. [Concomitant]
     Active Substance: CLONAZEPAM
     Dosage: 0.5 MG, UNK
     Route: 048
  3. FLUOXETINE [Concomitant]
     Active Substance: FLUOXETINE\FLUOXETINE HYDROCHLORIDE
     Dosage: 40 MG, UNK
     Route: 048
  4. OXAPROZIN. [Concomitant]
     Active Substance: OXAPROZIN
     Dosage: 600 MG, BID
  5. ADDERALL [Concomitant]
     Active Substance: AMPHETAMINE ASPARTATE\AMPHETAMINE SULFATE\DEXTROAMPHETAMINE SACCHARATE\DEXTROAMPHETAMINE SULFATE
     Dosage: 30 MG, TID
     Route: 048
  6. HIBICLENS [Concomitant]
     Active Substance: CHLORHEXIDINE GLUCONATE

REACTIONS (6)
  - Uterine polyp [None]
  - Vaginal haemorrhage [None]
  - Unintentional medical device removal [None]
  - Herpes simplex [None]
  - Menometrorrhagia [None]
  - Abdominal pain [None]

NARRATIVE: CASE EVENT DATE: 20140918
